FAERS Safety Report 11515398 (Version 1)
Quarter: 2015Q3

REPORT INFORMATION
  Report Type: Spontaneous
  Country: US (occurrence: US)
  Receive Date: 20150916
  Receipt Date: 20150916
  Transmission Date: 20151125
  Serious: No
  Sender: FDA-Public Use
  Company Number: US-APOTEX-2014AP004854

PATIENT

DRUGS (1)
  1. ALENDRONATE SODIUM. [Suspect]
     Active Substance: ALENDRONATE SODIUM
     Indication: ACCIDENTAL EXPOSURE TO PRODUCT
     Dosage: 70 MG, UNK
     Route: 065

REACTIONS (2)
  - No adverse event [Unknown]
  - Accidental exposure to product [Unknown]
